FAERS Safety Report 16885511 (Version 1)
Quarter: 2019Q4

REPORT INFORMATION
  Report Type: Spontaneous
  Country: IQ (occurrence: IQ)
  Receive Date: 20191004
  Receipt Date: 20191004
  Transmission Date: 20200122
  Serious: Yes (Death, Other)
  Sender: FDA-Public Use
  Company Number: IQ-AMGEN-IRQSP2019161945

PATIENT
  Age: 1 Day

DRUGS (1)
  1. ENBREL [Suspect]
     Active Substance: ETANERCEPT
     Indication: MATERNAL EXPOSURE DURING PREGNANCY
     Dosage: UNK
     Route: 064

REACTIONS (3)
  - Cyanosis neonatal [Fatal]
  - Maternal exposure during pregnancy [Unknown]
  - Neonatal respiratory failure [Fatal]

NARRATIVE: CASE EVENT DATE: 2018
